FAERS Safety Report 16410640 (Version 1)
Quarter: 2019Q2

REPORT INFORMATION
  Report Type: Spontaneous
  Country: QA (occurrence: QA)
  Receive Date: 20190610
  Receipt Date: 20190610
  Transmission Date: 20190711
  Serious: Yes (Other)
  Sender: FDA-Public Use
  Company Number: QA-ZO SKIN HEALTH-2019ZOS00005

PATIENT
  Age: 20 Year
  Sex: Male

DRUGS (2)
  1. PETHEMA PROTOCOL [Concomitant]
     Indication: ACUTE PROMYELOCYTIC LEUKAEMIA
     Route: 065
  2. TRETINOIN. [Suspect]
     Active Substance: TRETINOIN
     Indication: ACUTE PROMYELOCYTIC LEUKAEMIA
     Dosage: 45 MG/M2
     Route: 065

REACTIONS (1)
  - Thrombocytosis [Recovered/Resolved]
